FAERS Safety Report 5937848-8 (Version None)
Quarter: 2008Q4

REPORT INFORMATION
  Report Type: 
  Country: None (occurrence: None)
  Receive Date: 20081031
  Receipt Date: 20080814
  Transmission Date: 20090506
  Serious: No
  Sender: FDA-Public Use
  Company Number: US-BAYER-200832071NA

PATIENT
  Age: 34 Year
  Sex: Female

DRUGS (1)
  1. MAGNEVIST [Suspect]
     Indication: NUCLEAR MAGNETIC RESONANCE IMAGING BRAIN
     Dosage: TOTAL DAILY DOSE: 11 ML  UNIT DOSE: 20 ML
     Route: 042
     Dates: start: 20080814, end: 20080814

REACTIONS (1)
  - SENSATION OF HEAVINESS [None]
